FAERS Safety Report 12157689 (Version 1)
Quarter: 2016Q1

REPORT INFORMATION
  Report Type: Spontaneous
  Country: US (occurrence: None)
  Receive Date: 20160307
  Receipt Date: 20160307
  Transmission Date: 20160526
  Serious: Yes (Life-Threatening, Hospitalization, Disabling, Other)
  Sender: FDA-Public Use
  Company Number: None

PATIENT
  Age: 45 Year
  Sex: Male
  Weight: 72.58 kg

DRUGS (1)
  1. ZOLOFT [Suspect]
     Active Substance: SERTRALINE HYDROCHLORIDE
     Indication: BIPOLAR DISORDER
     Dosage: TAKEN BY MOUTH
     Route: 048

REACTIONS (18)
  - Sinus disorder [None]
  - Influenza [None]
  - Tremor [None]
  - Back pain [None]
  - Rash generalised [None]
  - Weight decreased [None]
  - Muscle twitching [None]
  - Anxiety [None]
  - Headache [None]
  - Paraesthesia [None]
  - Muscle spasms [None]
  - Muscle tightness [None]
  - Cardiac disorder [None]
  - Drug withdrawal syndrome [None]
  - Asthenia [None]
  - Tinnitus [None]
  - Suicidal ideation [None]
  - Dyspnoea [None]
